FAERS Safety Report 12497402 (Version 1)
Quarter: 2016Q2

REPORT INFORMATION
  Report Type: Spontaneous
  Country: CA (occurrence: CA)
  Receive Date: 20160624
  Receipt Date: 20160624
  Transmission Date: 20160815
  Serious: Yes (Life-Threatening, Other)
  Sender: FDA-Public Use
  Company Number: CA-SUNOVION-2016SUN001575

PATIENT

DRUGS (5)
  1. APTIOM [Suspect]
     Active Substance: ESLICARBAZEPINE ACETATE
     Indication: PARTIAL SEIZURES
     Dosage: 400 MG, UNK
     Route: 048
  2. CLOBAZAM [Suspect]
     Active Substance: CLOBAZAM
     Dosage: 10 MG, QD
  3. EPIVAL [Suspect]
     Active Substance: DIVALPROEX SODIUM
     Dosage: UNK, BID
  4. APTIOM [Suspect]
     Active Substance: ESLICARBAZEPINE ACETATE
     Dosage: 800 MG, UNK
     Route: 048
  5. LAMOTRIGINE. [Suspect]
     Active Substance: LAMOTRIGINE
     Dosage: 100 MG, BID

REACTIONS (2)
  - Labelled drug-drug interaction medication error [Unknown]
  - Coma [Recovered/Resolved]
